FAERS Safety Report 12089352 (Version 1)
Quarter: 2016Q1

REPORT INFORMATION
  Report Type: Report from Study
  Country: US (occurrence: US)
  Receive Date: 20160218
  Receipt Date: 20160218
  Transmission Date: 20160526
  Serious: Yes (Hospitalization)
  Sender: FDA-Public Use
  Company Number: US-JNJFOC-20160215209

PATIENT
  Age: 21 Year
  Sex: Male
  Weight: 74.84 kg

DRUGS (1)
  1. REMICADE [Suspect]
     Active Substance: INFLIXIMAB
     Indication: INFLAMMATORY BOWEL DISEASE
     Route: 042
     Dates: start: 20110608, end: 20120402

REACTIONS (1)
  - Hydrocephalus [Not Recovered/Not Resolved]

NARRATIVE: CASE EVENT DATE: 20151210
